FAERS Safety Report 19263884 (Version 1)
Quarter: 2021Q2

REPORT INFORMATION
  Report Type: Spontaneous
  Country: KR (occurrence: KR)
  Receive Date: 20210517
  Receipt Date: 20210517
  Transmission Date: 20210717
  Serious: Yes (Hospitalization, Other)
  Sender: FDA-Public Use
  Company Number: NVSC2021KR104727

PATIENT
  Age: 66 Year
  Sex: Female

DRUGS (2)
  1. POLMACOXIB. [Suspect]
     Active Substance: POLMACOXIB
     Indication: RHEUMATOID ARTHRITIS
     Dosage: UNK
     Route: 048
  2. EVEROLIMUS. [Suspect]
     Active Substance: EVEROLIMUS
     Indication: BREAST CANCER STAGE II
     Dosage: 10 MG, QD
     Route: 048

REACTIONS (1)
  - Large intestine perforation [Recovered/Resolved]
